FAERS Safety Report 8438012-3 (Version None)
Quarter: 2012Q2

REPORT INFORMATION
  Report Type: 
  Country: None (occurrence: None)
  Receive Date: 20120614
  Receipt Date: 20120531
  Transmission Date: 20120825
  Serious: No
  Sender: FDA-Public Use
  Company Number: US-AMGEN-USASP2012031633

PATIENT
  Age: 60 Year
  Sex: Female

DRUGS (9)
  1. BENICAR [Concomitant]
  2. LEVOTHYROXINE SODIUM [Concomitant]
  3. METFORMIN HCL [Concomitant]
  4. TRAZODONE HCL [Concomitant]
  5. PROLIA [Suspect]
     Indication: OSTEOPOROSIS POSTMENOPAUSAL
     Dosage: 60 MG, Q6MO
     Route: 058
     Dates: start: 20111101
  6. OMEPRAZOLE [Concomitant]
  7. TRAMADOL HCL [Concomitant]
  8. ZETIA [Concomitant]
  9. CYMBALTA [Concomitant]

REACTIONS (2)
  - TOOTH FRACTURE [None]
  - TOOTHACHE [None]
